FAERS Safety Report 9288621 (Version 1)
Quarter: 2012Q4

REPORT INFORMATION
  Report Type: Spontaneous
  Country: US (occurrence: None)
  Receive Date: 20120912
  Receipt Date: 20120912
  Transmission Date: 20130627
  Serious: Yes (Life-Threatening, Hospitalization, Other)
  Sender: FDA-Public Use
  Company Number: JPI-P-013233

PATIENT
  Age: 72 Year
  Sex: Female
  Weight: 63.5 kg

DRUGS (13)
  1. XYREM (500 MILLIGRAM/MILLILITERS, SOLUTION) (SODIUM OXYBATE) [Suspect]
     Indication: CATAPLEXY
     Route: 048
     Dates: start: 20101016, end: 20101016
  2. XYREM (500 MILLIGRAM/MILLILITERS, SOLUTION) (SODIUM OXYBATE) [Suspect]
     Indication: CATAPLEXY
     Route: 048
     Dates: start: 20101018, end: 20101019
  3. XYREM (500 MILLIGRAM/MILLILITERS, SOLUTION) (SODIUM OXYBATE) [Suspect]
     Indication: CATAPLEXY
     Route: 048
     Dates: start: 2010
  4. XYREM (500 MILLIGRAM/MILLILITERS, SOLUTION) (SODIUM OXYBATE) [Suspect]
     Indication: CATAPLEXY
     Route: 048
     Dates: start: 2010, end: 20101111
  5. OMEGA-3-ACID ETHYL ESTERS [Concomitant]
  6. AMLODIPINE GESYLATE [Concomitant]
  7. SERTRALINE HYDROCHLORIDE [Concomitant]
  8. ASPIRIN [Concomitant]
  9. TOPIRAMATE [Concomitant]
  10. ESOMEPRAZOLE MAGNESIUM [Concomitant]
  11. PROPRANOLOL HYDROCHLORIDE [Concomitant]
  12. TRAZODONE HYDROCHLORIDE [Concomitant]
  13. ATORVASTATIN CALCIUM [Concomitant]

REACTIONS (8)
  - Stress [None]
  - Myocardial infarction [None]
  - Abdominal discomfort [None]
  - Abdominal pain [None]
  - Dysuria [None]
  - Nausea [None]
  - Headache [None]
  - Feeling abnormal [None]
